FAERS Safety Report 12290456 (Version 1)
Quarter: 2016Q2

REPORT INFORMATION
  Report Type: Spontaneous
  Country: DE (occurrence: DE)
  Receive Date: 20160421
  Receipt Date: 20160421
  Transmission Date: 20160815
  Serious: Yes (Hospitalization, Other)
  Sender: FDA-Public Use
  Company Number: PHHY2016DE036287

PATIENT
  Age: 83 Year
  Sex: Male
  Weight: 90 kg

DRUGS (17)
  1. ACETYLSALICYLIC ACID [Concomitant]
     Active Substance: ASPIRIN
     Indication: PRODUCT USED FOR UNKNOWN INDICATION
     Dosage: 1 DF, QD (AT NOON)
     Route: 065
     Dates: start: 20081220
  2. AMLODIPIN//AMLODIPINE [Concomitant]
     Indication: PRODUCT USED FOR UNKNOWN INDICATION
     Dosage: 1 DF, QD (AT NOON)
     Route: 065
     Dates: start: 20110820, end: 20160219
  3. GABAPENTIN. [Concomitant]
     Active Substance: GABAPENTIN
     Indication: PRODUCT USED FOR UNKNOWN INDICATION
     Dosage: 3 DF, QD (1 DF IN THE MORNING, 1 DF AT NOON AND 1 DF IN THE EVENING)
     Route: 065
     Dates: start: 20100204
  4. MACROGOL [Concomitant]
     Active Substance: POLYETHYLENE GLYCOLS
     Indication: CONSTIPATION
     Dosage: UNK
     Route: 065
     Dates: start: 20130628
  5. PANTOPRAZOL [Concomitant]
     Active Substance: PANTOPRAZOLE SODIUM
     Indication: PRODUCT USED FOR UNKNOWN INDICATION
     Dosage: 2 DF, QD (IN THE MORNING)
     Route: 065
     Dates: start: 20110728
  6. SEROQUEL [Concomitant]
     Active Substance: QUETIAPINE FUMARATE
     Dosage: 1.5 DF, QD (IN THE MORNING)
     Route: 065
     Dates: start: 20141115, end: 20160219
  7. VITAMIN E [Concomitant]
     Active Substance: .ALPHA.-TOCOPHEROL
     Indication: PRODUCT USED FOR UNKNOWN INDICATION
     Dosage: 1 DF, QD (IN THE MORNING OWN PREPARATION)
     Route: 065
     Dates: start: 20150307, end: 20160219
  8. CALCIUM ACETATE NEPHRO [Concomitant]
     Active Substance: CALCIUM ACETATE
     Indication: PRODUCT USED FOR UNKNOWN INDICATION
     Dosage: 9 DF, QD (3 DF IN THE MORNING, 3 DF AT NOON AND 3 DF IN THE EVENING)
     Route: 065
     Dates: start: 20120714
  9. SIMVASTATIN. [Concomitant]
     Active Substance: SIMVASTATIN
     Indication: PRODUCT USED FOR UNKNOWN INDICATION
     Dosage: 1 DF, QD (IN THE EVENING)
     Route: 065
     Dates: start: 20140630
  10. NOVALGIN [Concomitant]
     Active Substance: METAMIZOLE SODIUM
     Indication: PRODUCT USED FOR UNKNOWN INDICATION
     Dosage: 20 DRP, PRN
     Route: 065
     Dates: start: 20130314
  11. VALORON N                          /00628301/ [Concomitant]
     Active Substance: NALOXONE HYDROCHLORIDE\TILIDINE HYDROCHLORIDE
     Indication: PRODUCT USED FOR UNKNOWN INDICATION
     Dosage: 3 DF, QD (1 DF IN THE MORNING, 1 DF AT NOON AND 1 DF IN THE EVENING)
     Route: 065
     Dates: start: 20150304, end: 20160219
  12. EXELON [Suspect]
     Active Substance: RIVASTIGMINE TARTRATE
     Indication: MIXED DEMENTIA
     Dosage: 4.6 MG, QD
     Route: 062
     Dates: start: 20130607, end: 20160219
  13. ACTRAPID//INSULIN HUMAN [Concomitant]
     Indication: PRODUCT USED FOR UNKNOWN INDICATION
     Dosage: ACCORDING TO THE INJECTION PLAN
     Route: 065
     Dates: start: 20140630
  14. ACTRAPHANE [Concomitant]
     Active Substance: INSULIN HUMAN
     Indication: PRODUCT USED FOR UNKNOWN INDICATION
     Dosage: UNK
     Route: 065
     Dates: start: 20081229
  15. BISOPROLOL HEMIFUMARATE [Concomitant]
     Active Substance: BISOPROLOL FUMARATE
     Indication: PRODUCT USED FOR UNKNOWN INDICATION
     Dosage: 1 DF, QD (IN THE MORNING)
     Route: 065
     Dates: start: 20160219
  16. TORASEMID [Concomitant]
     Active Substance: TORSEMIDE
     Indication: PRODUCT USED FOR UNKNOWN INDICATION
     Dosage: 2 DF, QD (IN THE MORNING)
     Route: 065
     Dates: start: 20081229
  17. TAMSULOSIN HYDROCHLORIDE. [Concomitant]
     Active Substance: TAMSULOSIN HYDROCHLORIDE
     Indication: PRODUCT USED FOR UNKNOWN INDICATION
     Dosage: 1 DF, QD (IN THE MORNING)
     Route: 065
     Dates: start: 20150304

REACTIONS (26)
  - Infection [Unknown]
  - Delirium [Not Recovered/Not Resolved]
  - Faeces soft [Unknown]
  - Drug intolerance [Recovering/Resolving]
  - Chronic gastritis [Unknown]
  - Diverticulum intestinal [Unknown]
  - Skin erosion [Unknown]
  - Enterococcal infection [Unknown]
  - Arthralgia [Unknown]
  - Necrosis [Unknown]
  - Barrett^s oesophagus [Unknown]
  - Urinary tract infection [Unknown]
  - Osteopenia [Unknown]
  - Klebsiella infection [Unknown]
  - Skin reaction [Recovering/Resolving]
  - Disorientation [Not Recovered/Not Resolved]
  - Pneumonia [Unknown]
  - Clostridium difficile infection [Unknown]
  - Fall [Unknown]
  - Disturbance in attention [Unknown]
  - Peripheral arterial occlusive disease [Unknown]
  - Haemoglobin decreased [Unknown]
  - Duodenitis [Unknown]
  - Product use issue [Unknown]
  - Contusion [Unknown]
  - Pleural effusion [Unknown]

NARRATIVE: CASE EVENT DATE: 20130701
